FAERS Safety Report 15553549 (Version 2)
Quarter: 2018Q4

REPORT INFORMATION
  Report Type: Spontaneous
  Country: US (occurrence: US)
  Receive Date: 20181026
  Receipt Date: 20181031
  Transmission Date: 20190205
  Serious: No
  Sender: FDA-Public Use
  Company Number: PHEH2018US045008

PATIENT
  Sex: Female

DRUGS (1)
  1. JADENU [Suspect]
     Active Substance: DEFERASIROX
     Indication: MYELODYSPLASTIC SYNDROME
     Dosage: 1080 MG, QD
     Route: 048

REACTIONS (10)
  - White blood cell count decreased [Unknown]
  - Red blood cell count decreased [Unknown]
  - Haemoglobin decreased [Unknown]
  - Oedema peripheral [Unknown]
  - Depression [Unknown]
  - Contusion [Unknown]
  - Red cell distribution width increased [Unknown]
  - Blood urea nitrogen/creatinine ratio increased [Unknown]
  - Diarrhoea [Unknown]
  - Haematocrit decreased [Unknown]
